FAERS Safety Report 4341926-7 (Version None)
Quarter: 2004Q2

REPORT INFORMATION
  Report Type: 
  Country: None (occurrence: None)
  Receive Date: 20040413
  Receipt Date: 20040329
  Transmission Date: 20050107
  Serious: Yes (Life-Threatening, Hospitalization, Disabling, Other)
  Sender: FDA-Public Use
  Company Number: 2003-06272

PATIENT
  Age: 47 Year
  Sex: Male
  Weight: 74.1631 kg

DRUGS (4)
  1. VIREAD [Suspect]
     Indication: HIV INFECTION
     Dosage: SEE IMAGE
     Route: 048
     Dates: start: 20020729, end: 20030317
  2. VIREAD [Suspect]
     Indication: HIV INFECTION
     Dosage: SEE IMAGE
     Route: 048
     Dates: start: 20030401, end: 20030908
  3. KALETRA [Concomitant]
  4. HIVID [Concomitant]

REACTIONS (5)
  - HAEMODIALYSIS [None]
  - HAEMOLYTIC URAEMIC SYNDROME [None]
  - MYOCARDIAL INFARCTION [None]
  - PYREXIA [None]
  - THROMBOTIC THROMBOCYTOPENIC PURPURA [None]
